FAERS Safety Report 6667721-1 (Version None)
Quarter: 2010Q2

REPORT INFORMATION
  Report Type: 
  Country: None (occurrence: None)
  Receive Date: 20100405
  Receipt Date: 20100322
  Transmission Date: 20101027
  Serious: Yes (Hospitalization, Other)
  Sender: FDA-Public Use
  Company Number: US-MYLANLABS-2010S1004759

PATIENT
  Age: 70 Year
  Sex: Male

DRUGS (8)
  1. PREDNISONE TAB [Suspect]
     Indication: RHEUMATOID ARTHRITIS
     Dosage: 8 MG/DAY
     Route: 065
  2. AZATHIOPRINE [Suspect]
     Indication: RHEUMATOID ARTHRITIS
     Route: 065
  3. INFLIXIMAB [Suspect]
     Indication: RHEUMATOID ARTHRITIS
     Route: 065
  4. ISONIAZID [Suspect]
     Indication: PERITONEAL TUBERCULOSIS
     Dosage: DAILY REGIMEN INCLUDING ISONIAZID 300MG
     Route: 065
  5. RIFAMPICIN [Suspect]
     Indication: PERITONEAL TUBERCULOSIS
     Dosage: DAILY REGIMEN INCLUDING RIFAMPICIN 600MG
     Route: 065
  6. ETHAMBUTOL HYDROCHLORIDE [Suspect]
     Indication: PERITONEAL TUBERCULOSIS
     Dosage: DAILY REGIMEN INCLUDING ETHAMBUTOL 1.2G
     Route: 065
  7. PYRAZINAMIDE [Suspect]
     Indication: PERITONEAL TUBERCULOSIS
     Dosage: DAILY REGIMEN INCLUDING PYRAZINAMIDE 1.5G
     Route: 065
  8. PYRIDOXINE HCL [Concomitant]
     Dosage: 50 MG/DAY
     Route: 065

REACTIONS (3)
  - HEPATITIS [None]
  - IMMUNE RECONSTITUTION SYNDROME [None]
  - PERITONEAL TUBERCULOSIS [None]
